FAERS Safety Report 10440598 (Version 3)
Quarter: 2014Q4

REPORT INFORMATION
  Report Type: Spontaneous
  Country: US (occurrence: US)
  Receive Date: 20140909
  Receipt Date: 20141003
  Transmission Date: 20150528
  Serious: Yes (Other)
  Sender: FDA-Public Use
  Company Number: US-AMGEN-USASP2014067941

PATIENT
  Age: 0 Day
  Sex: Female
  Weight: 2.27 kg

DRUGS (3)
  1. ENBREL [Suspect]
     Active Substance: ETANERCEPT
     Indication: EXPOSURE DURING PREGNANCY
     Dosage: 50 MG, QWK
     Route: 064
  2. PRENATAL IRON [Concomitant]
     Dosage: UNK
     Route: 064
  3. PROBIOTIC                          /06395501/ [Concomitant]
     Dosage: 1 UNK, QD
     Route: 064

REACTIONS (3)
  - Blood glucose decreased [Unknown]
  - Body temperature decreased [Unknown]
  - Premature baby [Unknown]

NARRATIVE: CASE EVENT DATE: 20140604
